FAERS Safety Report 11616246 (Version 1)
Quarter: 2015Q4

REPORT INFORMATION
  Report Type: Spontaneous
  Country: US (occurrence: None)
  Receive Date: 20151009
  Receipt Date: 20151009
  Transmission Date: 20160304
  Serious: Yes (Hospitalization, Other)
  Sender: FDA-Public Use
  Company Number: ADR-2013-01532

PATIENT
  Sex: Male

DRUGS (1)
  1. LIORESAL [Suspect]
     Active Substance: BACLOFEN
     Indication: MUSCLE SPASTICITY
     Dosage: 358.4 MCG/DAY

REACTIONS (5)
  - Generalised tonic-clonic seizure [None]
  - Therapeutic response decreased [None]
  - Drug withdrawal syndrome [None]
  - Seizure [None]
  - Muscle spasticity [None]
